FAERS Safety Report 24778287 (Version 1)
Quarter: 2024Q4

REPORT INFORMATION
  Report Type: Report from Study
  Country: US (occurrence: US)
  Receive Date: 20241226
  Receipt Date: 20241226
  Transmission Date: 20250114
  Serious: Yes (Hospitalization)
  Sender: UCB
  Company Number: US-UCBSA-2024065062

PATIENT
  Sex: Male

DRUGS (1)
  1. BRIVARACETAM [Suspect]
     Active Substance: BRIVARACETAM
     Indication: Seizure
     Dosage: 100MG-1 TAB AM + 2 TABS PM

REACTIONS (3)
  - Chest pain [Unknown]
  - Hospitalisation [Not Recovered/Not Resolved]
  - Off label use [Unknown]
